FAERS Safety Report 19866132 (Version 1)
Quarter: 2021Q3

REPORT INFORMATION
  Report Type: Spontaneous
  Country: CN (occurrence: CN)
  Receive Date: 20210922
  Receipt Date: 20210922
  Transmission Date: 20211014
  Serious: Yes (Hospitalization)
  Sender: FDA-Public Use
  Company Number: CN-TOPROL-2021000206

PATIENT
  Age: 82 Year
  Sex: Female
  Weight: 56 kg

DRUGS (1)
  1. BETALOC [Suspect]
     Active Substance: METOPROLOL
     Route: 048
     Dates: start: 20210826, end: 20210828

REACTIONS (2)
  - Product use in unapproved indication [Unknown]
  - Sinus arrest [Recovered/Resolved]

NARRATIVE: CASE EVENT DATE: 20210828
